FAERS Safety Report 24401558 (Version 1)
Quarter: 2024Q4

REPORT INFORMATION
  Report Type: Spontaneous
  Country: US (occurrence: US)
  Receive Date: 20241007
  Receipt Date: 20241007
  Transmission Date: 20250114
  Serious: No
  Sender: ALK-ABELLO
  Company Number: US-ALK-ABELLO A/S-2024AA003514

PATIENT

DRUGS (17)
  1. CARYA ILLINOINENSIS POLLEN [Suspect]
     Active Substance: CARYA ILLINOINENSIS POLLEN
     Indication: Diagnostic procedure
  2. ALBUTEROL SULFATE [Concomitant]
     Active Substance: ALBUTEROL SULFATE
     Indication: Product used for unknown indication
     Dosage: 2.5 MILLIGRAM
     Dates: start: 20240819
  3. BETAMETHASONE VALERATE [Concomitant]
     Active Substance: BETAMETHASONE VALERATE
     Indication: Product used for unknown indication
     Dosage: 0.1 % TOPICAL OINTMENT
     Route: 061
     Dates: start: 20240819
  4. DIPHENHYDRAMINE HYDROCHLORIDE [Concomitant]
     Active Substance: DIPHENHYDRAMINE HYDROCHLORIDE
     Indication: Product used for unknown indication
     Dosage: 7 MILLILITER (12.5 MG/5 ML ORAL LIQUID)
     Route: 048
     Dates: start: 20240819
  5. DUPIXENT [Concomitant]
     Active Substance: DUPILUMAB
     Indication: Product used for unknown indication
     Dosage: 200 MG/1.14 ML SUBCUTANEOUS PEN INJECTOR
     Route: 058
     Dates: start: 20231228
  6. FLUTICASONE PROPIONATE [Concomitant]
     Active Substance: FLUTICASONE PROPIONATE
     Dosage: 10 MCG/ACTUATION
  7. HYDROWIN [Concomitant]
     Dosage: 10 MG/5 ML
     Route: 048
  8. LORATADINE [Concomitant]
     Active Substance: LORATADINE
     Dosage: 5 MG/5 ML
     Route: 048
  9. MUPIROCIN [Concomitant]
     Active Substance: MUPIROCIN
     Route: 061
  10. TACROLIMUS [Concomitant]
     Active Substance: TACROLIMUS
     Route: 061
  11. DAE BULK 764 [Concomitant]
  12. DAE BULK 765 [Concomitant]
  13. DAE BULK 763 [Concomitant]
  14. DAE BULK 766 [Concomitant]
  15. PISTACHIO NUT [Concomitant]
     Active Substance: PISTACHIO
  16. DAE BULK 714 [Concomitant]
  17. DAE BULK 1334 [Concomitant]

REACTIONS (1)
  - False negative investigation result [Unknown]
